FAERS Safety Report 14910720 (Version 3)
Quarter: 2018Q3

REPORT INFORMATION
  Report Type: Report from Study
  Country: US (occurrence: US)
  Receive Date: 20180517
  Receipt Date: 20180802
  Transmission Date: 20181010
  Serious: No
  Sender: FDA-Public Use
  Company Number: PHEH2018US018853

PATIENT
  Sex: Female

DRUGS (1)
  1. COSENTYX [Suspect]
     Active Substance: SECUKINUMAB
     Indication: PSORIASIS
     Dosage: 300 MG, QMO
     Route: 058

REACTIONS (6)
  - Myalgia [Unknown]
  - Pruritus [Unknown]
  - Arthralgia [Unknown]
  - Fungal infection [Unknown]
  - Cystitis [Recovered/Resolved]
  - Weight decreased [Unknown]
